FAERS Safety Report 7701325-4 (Version None)
Quarter: 2011Q3

REPORT INFORMATION
  Report Type: 
  Country: None (occurrence: None)
  Receive Date: 20110822
  Receipt Date: 20110810
  Transmission Date: 20111222
  Serious: Yes (Hospitalization)
  Sender: FDA-Public Use
  Company Number: US-ELI_LILLY_AND_COMPANY-US201108001420

PATIENT
  Sex: Male
  Weight: 102.4 kg

DRUGS (6)
  1. METOPROLOL [Concomitant]
  2. EFFIENT [Suspect]
     Indication: STENT PLACEMENT
     Dosage: 10 MG, QD
     Dates: start: 20110629, end: 20110729
  3. ZOCOR [Concomitant]
  4. ALDOSTERONE [Concomitant]
  5. ADVAIR DISKUS 100/50 [Concomitant]
  6. LISINOPRIL [Concomitant]

REACTIONS (1)
  - CHEST PAIN [None]
